FAERS Safety Report 4345844-X (Version None)
Quarter: 2004Q2

REPORT INFORMATION
  Report Type: 
  Country: None (occurrence: None)
  Receive Date: 20040421
  Receipt Date: 20040406
  Transmission Date: 20050107
  Serious: Yes (Hospitalization)
  Sender: FDA-Public Use
  Company Number: 2004SE02009

PATIENT
  Age: 64 Year
  Sex: Male

DRUGS (2)
  1. SELOKEEN ZOC [Suspect]
     Indication: HYPERTENSION
     Dosage: 100 MG QD PO
     Route: 048
     Dates: start: 20040301
  2. RENITEC [Suspect]
     Indication: HYPERTENSION
     Dosage: 20 MG QD PO
     Route: 048
     Dates: start: 20040301

REACTIONS (3)
  - AGITATION [None]
  - PANIC DISORDER [None]
  - PANIC REACTION [None]
